FAERS Safety Report 9822429 (Version 1)
Quarter: 2014Q1

REPORT INFORMATION
  Report Type: Report from Study
  Country: CN (occurrence: CN)
  Receive Date: 20140116
  Receipt Date: 20140116
  Transmission Date: 20141002
  Serious: Yes (Death, Other)
  Sender: FDA-Public Use
  Company Number: CN-BAXTER-2014BAX001658

PATIENT
  Age: 76 Year
  Sex: Female

DRUGS (24)
  1. ENDOXAN 1G [Suspect]
     Indication: ANGIOIMMUNOBLASTIC T-CELL LYMPHOMA
     Dosage: TWO CYCLES
     Route: 065
  2. ENDOXAN 1G [Suspect]
     Dosage: THREE CYCLES
     Route: 065
  3. ENDOXAN 1G [Suspect]
     Dosage: TWO CYCLES
     Route: 065
  4. ENDOXAN 1G [Suspect]
     Dosage: ONE CYCLE
     Route: 065
     Dates: start: 201010
  5. DOXORUBICIN [Suspect]
     Indication: ANGIOIMMUNOBLASTIC T-CELL LYMPHOMA
     Dosage: TWO CYCLES
     Route: 065
  6. DOXORUBICIN [Suspect]
     Dosage: THREE CYCLES
     Route: 065
  7. VINCRISTINE [Suspect]
     Indication: ANGIOIMMUNOBLASTIC T-CELL LYMPHOMA
     Dosage: TWO CYCLES
     Route: 065
  8. VINCRISTINE [Suspect]
     Dosage: THREE CYCLES
     Route: 065
  9. VINCRISTINE [Suspect]
     Dosage: ONE CYCLE
     Route: 065
     Dates: start: 201010
  10. PREDNISOLONE [Suspect]
     Indication: ANGIOIMMUNOBLASTIC T-CELL LYMPHOMA
     Dosage: TWO CYCLES
     Route: 065
  11. PREDNISOLONE [Suspect]
     Dosage: THREE CYCLES
     Route: 065
  12. PREDNISOLONE [Suspect]
     Dosage: ONE CYCLE
     Route: 065
     Dates: start: 201010
  13. ETOPOSIDE [Suspect]
     Indication: ANGIOIMMUNOBLASTIC T-CELL LYMPHOMA
     Dosage: THREE CYCLES
     Route: 065
  14. ETOPOSIDE [Suspect]
     Dosage: TWO CYCLES
     Route: 065
  15. CISPLATIN [Suspect]
     Indication: ANGIOIMMUNOBLASTIC T-CELL LYMPHOMA
     Dosage: TWO CYCLES
     Route: 065
  16. DEXAMETHASONE [Suspect]
     Indication: ANGIOIMMUNOBLASTIC T-CELL LYMPHOMA
     Dosage: TWO CYCLES
     Route: 065
  17. DEXAMETHASONE [Suspect]
     Dosage: DAYS 1, 4, 8, 11
     Route: 065
     Dates: start: 200903, end: 200907
  18. DEXAMETHASONE [Suspect]
     Dosage: ONE CYCLE
     Route: 065
  19. MITOXANTRONE [Suspect]
     Indication: ANGIOIMMUNOBLASTIC T-CELL LYMPHOMA
     Dosage: DAYS 1, 4, 8, 11
     Route: 065
     Dates: start: 200903, end: 200907
  20. MITOXANTRONE [Suspect]
     Dosage: ONE CYCLE
     Route: 065
  21. BORTEZOMIB [Suspect]
     Indication: ANGIOIMMUNOBLASTIC T-CELL LYMPHOMA
     Dosage: DAYS 1, 4, 8, 11
     Route: 065
     Dates: start: 200903, end: 200907
  22. BORTEZOMIB [Suspect]
     Dosage: ONE CYCLE
     Route: 065
  23. CYCLOSPORINE [Concomitant]
     Indication: PRODUCT USED FOR UNKNOWN INDICATION
     Route: 065
  24. THALIDOMIDE [Concomitant]
     Indication: PRODUCT USED FOR UNKNOWN INDICATION
     Route: 065

REACTIONS (3)
  - Lung infection [Fatal]
  - Disease progression [Unknown]
  - Bone marrow failure [Unknown]
